FAERS Safety Report 8374597-3 (Version None)
Quarter: 2012Q2

REPORT INFORMATION
  Report Type: 
  Country: None (occurrence: None)
  Receive Date: 20120521
  Receipt Date: 20120508
  Transmission Date: 20120825
  Serious: Yes (Hospitalization, Disabling)
  Sender: FDA-Public Use
  Company Number: JP-JNJFOC-20120305322

PATIENT
  Sex: Male
  Weight: 58 kg

DRUGS (9)
  1. RABEPRAZOLE SODIUM [Concomitant]
     Indication: PRODUCT USED FOR UNKNOWN INDICATION
     Route: 048
  2. REMICADE [Suspect]
     Route: 042
     Dates: start: 20070510
  3. METHOTREXATE [Concomitant]
     Route: 048
     Dates: start: 20070201
  4. MAGMITT [Concomitant]
     Route: 048
  5. LIXIANA [Concomitant]
     Route: 048
     Dates: start: 20120123, end: 20120127
  6. REMICADE [Suspect]
     Indication: RHEUMATOID ARTHRITIS
     Dosage: 33RD DOSE
     Route: 042
     Dates: start: 20120221
  7. REMICADE [Suspect]
     Route: 042
     Dates: start: 20070622
  8. REMICADE [Suspect]
     Route: 042
  9. METHOTREXATE [Concomitant]
     Indication: RHEUMATOID ARTHRITIS
     Route: 048
     Dates: start: 20070201, end: 20120316

REACTIONS (2)
  - DEMYELINATION [None]
  - HIP ARTHROPLASTY [None]
